FAERS Safety Report 18252429 (Version 1)
Quarter: 2020Q3

REPORT INFORMATION
  Report Type: Spontaneous
  Country: US (occurrence: US)
  Receive Date: 20200909
  Receipt Date: 20200909
  Transmission Date: 20201103
  Serious: No
  Sender: FDA-Public Use
  Company Number: None

PATIENT
  Age: 83 Year
  Sex: Male

DRUGS (1)
  1. EXJADE [Suspect]
     Active Substance: DEFERASIROX
     Dosage: ?          OTHER DOSE:250;?
     Route: 048
     Dates: start: 2020

REACTIONS (3)
  - Product use issue [None]
  - Dyspnoea [None]
  - Therapy change [None]

NARRATIVE: CASE EVENT DATE: 20200906
